FAERS Safety Report 9547006 (Version 1)
Quarter: 2013Q2

REPORT INFORMATION
  Report Type: Spontaneous
  Country: US (occurrence: None)
  Receive Date: 20130606
  Receipt Date: 20130606
  Transmission Date: 20140414
  Serious: Yes (Other)
  Sender: FDA-Public Use
  Company Number: 163-POMAL-13051028

PATIENT
  Age: 87 Year
  Sex: Male

DRUGS (1)
  1. POMALYST (POMALIDOMIDE) (CAPSULES) [Suspect]
     Indication: PLASMA CELL MYELOMA
     Dosage: 4MG, 21 IN 21 D, PO
     Dates: start: 20130419

REACTIONS (4)
  - Decreased appetite [None]
  - Faecaloma [None]
  - Urinary tract infection [None]
  - Back pain [None]
